FAERS Safety Report 7766063-0 (Version None)
Quarter: 2011Q3

REPORT INFORMATION
  Report Type: 
  Country: None (occurrence: None)
  Receive Date: 20110921
  Receipt Date: 20110912
  Transmission Date: 20111222
  Serious: Yes (Hospitalization)
  Sender: FDA-Public Use
  Company Number: US-ASTRAZENECA-2010SE57777

PATIENT
  Age: 59 Year
  Sex: Male
  Weight: 90.7 kg

DRUGS (24)
  1. IRON PILLS [Concomitant]
  2. EYE DROPS [Concomitant]
  3. SEROQUEL [Suspect]
     Route: 048
     Dates: start: 20100423
  4. CALCIUM CARBONATE [Concomitant]
  5. NEXIUM [Suspect]
     Indication: GASTROOESOPHAGEAL REFLUX DISEASE
     Route: 048
  6. SEROQUEL [Suspect]
     Indication: DEPRESSION
     Route: 048
     Dates: start: 20100208
  7. SEROQUEL [Suspect]
     Route: 048
     Dates: start: 20100423
  8. VIT C [Concomitant]
  9. WELLBUTRIN XL [Concomitant]
  10. GLICLAZIDE [Concomitant]
  11. SEROQUEL [Suspect]
     Indication: BIPOLAR DISORDER
     Route: 048
     Dates: start: 20100208
  12. SEROQUEL [Suspect]
     Route: 048
     Dates: start: 20100423
  13. FISH OIL [Concomitant]
  14. SIMVASTATIN [Concomitant]
  15. TOPAMAX [Concomitant]
     Indication: BIPOLAR DISORDER
     Dosage: TWICE A DAY
  16. SEROQUEL [Suspect]
     Route: 048
     Dates: start: 20100423
  17. DEPAKOTE [Concomitant]
  18. SEROQUEL [Suspect]
     Route: 048
     Dates: start: 20100208
  19. SEROQUEL [Suspect]
     Route: 048
     Dates: start: 20100423
  20. SEROQUEL [Suspect]
     Route: 048
     Dates: start: 20100423
  21. LISINOPRIL [Concomitant]
  22. GLIPIZIDE [Concomitant]
  23. LEVOTHYROXINE SODIUM [Concomitant]
  24. LORAZEPAM [Concomitant]
     Indication: BIPOLAR DISORDER

REACTIONS (18)
  - INAPPROPRIATE AFFECT [None]
  - BLOOD GLUCOSE FLUCTUATION [None]
  - WEIGHT INCREASED [None]
  - DYSPNOEA [None]
  - HEADACHE [None]
  - DIET REFUSAL [None]
  - POLLAKIURIA [None]
  - WEIGHT FLUCTUATION [None]
  - DYSPNOEA EXERTIONAL [None]
  - IMPAIRED SELF-CARE [None]
  - FATIGUE [None]
  - SOMNOLENCE [None]
  - ERUCTATION [None]
  - INSOMNIA [None]
  - PRURITUS [None]
  - DIABETES MELLITUS [None]
  - GAIT DISTURBANCE [None]
  - DYSPHAGIA [None]
